FAERS Safety Report 5463205-7 (Version None)
Quarter: 2007Q3

REPORT INFORMATION
  Report Type: 
  Country: None (occurrence: None)
  Receive Date: 20070920
  Receipt Date: 20070919
  Transmission Date: 20080115
  Serious: Yes (Death)
  Sender: FDA-Public Use
  Company Number: A0683079A

PATIENT
  Age: 85 Year
  Sex: Female
  Weight: 62 kg

DRUGS (4)
  1. CLAVULIN [Suspect]
     Indication: LUNG INFECTION
     Dosage: 875MG THREE TIMES PER DAY
     Route: 048
     Dates: start: 20070906, end: 20070910
  2. AEROLIN [Concomitant]
     Route: 055
     Dates: start: 20070501, end: 20070910
  3. LIORESAL [Concomitant]
     Route: 065
  4. BLOOD PRESSURE MEDICATION [Concomitant]
     Indication: BLOOD PRESSURE

REACTIONS (3)
  - DIARRHOEA [None]
  - URTICARIA [None]
  - VOMITING [None]
